FAERS Safety Report 14110939 (Version 1)
Quarter: 2017Q4

REPORT INFORMATION
  Report Type: Spontaneous
  Country: TR (occurrence: TR)
  Receive Date: 20171020
  Receipt Date: 20171020
  Transmission Date: 20180321
  Serious: Yes (Other)
  Sender: FDA-Public Use
  Company Number: TR-CELGENEUS-TUR-20171003191

PATIENT
  Age: 51 Year
  Sex: Male

DRUGS (1)
  1. THALIDOMIDE [Suspect]
     Active Substance: THALIDOMIDE
     Indication: PLASMA CELL MYELOMA
     Route: 048

REACTIONS (2)
  - Bladder cancer [Unknown]
  - Phaeochromocytoma [Unknown]
